FAERS Safety Report 21865017 (Version 1)
Quarter: 2023Q1

REPORT INFORMATION
  Report Type: Spontaneous
  Country: US (occurrence: US)
  Receive Date: 20230116
  Receipt Date: 20230116
  Transmission Date: 20230418
  Serious: Yes (Hospitalization, Other)
  Sender: FDA-Public Use
  Company Number: US-PROCTER_AND_GAMBLE-PH23000143

PATIENT
  Age: 23 Year
  Sex: Male

DRUGS (3)
  1. DEXTROMETHORPHAN [Suspect]
     Active Substance: DEXTROMETHORPHAN
     Indication: Suicide attempt
     Dosage: APPROXIMATELY 800-1000MG
     Route: 048
  2. BUPROPION HYDROCHLORIDE [Suspect]
     Active Substance: BUPROPION HYDROCHLORIDE
     Dosage: 300 MILLIGRAM
     Route: 048
  3. TRAZODONE [Suspect]
     Active Substance: TRAZODONE HYDROCHLORIDE
     Dosage: 100 MILLIGRAM
     Route: 048

REACTIONS (16)
  - Suicide attempt [Unknown]
  - Hallucination, visual [Unknown]
  - Hallucination, auditory [Unknown]
  - Myoclonus [Unknown]
  - Hyperreflexia [Unknown]
  - Clonus [Unknown]
  - Mydriasis [Unknown]
  - Tachycardia [Unknown]
  - Hypertension [Unknown]
  - Muscle spasms [Unknown]
  - Abdominal pain [Unknown]
  - Flushing [Unknown]
  - Condition aggravated [Unknown]
  - Serotonin syndrome [Unknown]
  - Overdose [Unknown]
  - Drug abuse [Unknown]
